FAERS Safety Report 13375767 (Version 4)
Quarter: 2017Q2

REPORT INFORMATION
  Report Type: Spontaneous
  Country: US (occurrence: US)
  Receive Date: 20170328
  Receipt Date: 20170612
  Transmission Date: 20170830
  Serious: Yes (Death, Hospitalization)
  Sender: FDA-Public Use
  Company Number: US-TAIHO ONCOLOGY INC-EU-2017-00499

PATIENT
  Age: 70 Year
  Sex: Female

DRUGS (7)
  1. COLACE CLEAR [Concomitant]
     Active Substance: DOCUSATE SODIUM
     Dosage: NI
  2. PEPCID [Concomitant]
     Active Substance: FAMOTIDINE
     Dosage: NI
  3. NITROGEN. [Concomitant]
     Active Substance: NITROGEN
     Dosage: NI
  4. METOPROLOL. [Concomitant]
     Active Substance: METOPROLOL
     Dosage: NI
  5. NORCO [Concomitant]
     Active Substance: ACETAMINOPHEN\HYDROCODONE BITARTRATE
     Dosage: NI
  6. LONSURF [Suspect]
     Active Substance: TIPIRACIL HYDROCHLORIDE\TRIFLURIDINE
     Indication: COLON CANCER
     Route: 048
     Dates: start: 20170310
  7. FUROSEMIDE. [Concomitant]
     Active Substance: FUROSEMIDE
     Dosage: NI

REACTIONS (3)
  - Disease progression [Fatal]
  - Nausea [Unknown]
  - Pain [Unknown]

NARRATIVE: CASE EVENT DATE: 20170314
